FAERS Safety Report 8355294-7 (Version None)
Quarter: 2012Q2

REPORT INFORMATION
  Report Type: 
  Country: None (occurrence: None)
  Receive Date: 20120511
  Receipt Date: 20120430
  Transmission Date: 20120825
  Serious: Yes (Disabling)
  Sender: FDA-Public Use
  Company Number: US-ELI_LILLY_AND_COMPANY-US201203003146

PATIENT
  Sex: Female

DRUGS (2)
  1. FORTEO [Suspect]
     Dosage: 20 UG, QD
     Route: 065
     Dates: start: 20120304, end: 20120307
  2. FORTEO [Suspect]
     Indication: OSTEOPOROSIS
     Dosage: 20 UG, QD
     Dates: start: 20120201

REACTIONS (6)
  - DECREASED ACTIVITY [None]
  - BONE PAIN [None]
  - SLEEP DISORDER DUE TO A GENERAL MEDICAL CONDITION [None]
  - ASTHENIA [None]
  - MUSCLE SPASMS [None]
  - ARTHRALGIA [None]
